FAERS Safety Report 21243931 (Version 1)
Quarter: 2022Q3

REPORT INFORMATION
  Report Type: Spontaneous
  Country: AU (occurrence: AU)
  Receive Date: 20220823
  Receipt Date: 20220823
  Transmission Date: 20221027
  Serious: Yes (Other)
  Sender: FDA-Public Use
  Company Number: AU-NOVARTISPH-NVSC2022AU187776

PATIENT
  Age: 73 Year
  Sex: Female

DRUGS (3)
  1. IMATINIB [Suspect]
     Active Substance: IMATINIB
     Indication: Chronic myeloid leukaemia
     Dosage: UNK
     Route: 065
     Dates: start: 2008
  2. NILOTINIB [Suspect]
     Active Substance: NILOTINIB
     Indication: Chronic myeloid leukaemia
     Dosage: UNK
     Route: 065
     Dates: start: 202105
  3. NILOTINIB [Suspect]
     Active Substance: NILOTINIB
     Dosage: 150 MG, QD
     Route: 065

REACTIONS (5)
  - Coronary artery disease [Unknown]
  - Philadelphia chromosome positive [Unknown]
  - Pleural effusion [Unknown]
  - Fatigue [Unknown]
  - Myalgia [Unknown]
